FAERS Safety Report 23104068 (Version 1)
Quarter: 2023Q4

REPORT INFORMATION
  Report Type: Spontaneous
  Country: GR (occurrence: GR)
  Receive Date: 20231025
  Receipt Date: 20231025
  Transmission Date: 20240110
  Serious: Yes (Hospitalization, Other)
  Sender: FDA-Public Use
  Company Number: GR-PFIZER INC-PV202300173266

PATIENT
  Age: 93 Year
  Sex: Female

DRUGS (1)
  1. PALBOCICLIB [Suspect]
     Active Substance: PALBOCICLIB
     Indication: Breast cancer metastatic

REACTIONS (3)
  - Myocardial infarction [Recovered/Resolved]
  - Atrioventricular block complete [Recovered/Resolved]
  - Thrombocytopenia [Recovered/Resolved]
